FAERS Safety Report 23391832 (Version 1)
Quarter: 2024Q1

REPORT INFORMATION
  Report Type: Spontaneous
  Country: US (occurrence: None)
  Receive Date: 20240110
  Receipt Date: 20240110
  Transmission Date: 20240410
  Serious: Yes (Hospitalization)
  Sender: FDA-Public Use
  Company Number: None

PATIENT
  Age: 54 Year
  Sex: Female
  Weight: 76.5 kg

DRUGS (14)
  1. OZEMPIC [Suspect]
     Active Substance: SEMAGLUTIDE
     Indication: Weight decreased
     Dates: start: 20230411, end: 20231203
  2. AMITRIPTYLINE [Concomitant]
     Active Substance: AMITRIPTYLINE
  3. DULOXETINE [Concomitant]
     Active Substance: DULOXETINE
  4. LINZESS [Concomitant]
     Active Substance: LINACLOTIDE
  5. MELOXICAM [Concomitant]
     Active Substance: MELOXICAM
  6. OSPHENA [Concomitant]
     Active Substance: OSPEMIFENE
  7. ASTEPRO [Concomitant]
     Active Substance: AZELASTINE HYDROCHLORIDE
  8. PREGABALIN [Concomitant]
     Active Substance: PREGABALIN
  9. MYRBETRIQ [Concomitant]
     Active Substance: MIRABEGRON
  10. VITAMIN C [Concomitant]
     Active Substance: ASCORBIC ACID
  11. BIOTIN [Concomitant]
     Active Substance: BIOTIN
  12. MIRALAX [Concomitant]
     Active Substance: POLYETHYLENE GLYCOL 3350
  13. METAMUCIL [Concomitant]
     Active Substance: PLANTAGO SEED
  14. MELATONIN [Concomitant]
     Active Substance: MELATONIN

REACTIONS (13)
  - Constipation [None]
  - Abdominal pain [None]
  - Abdominal pain [None]
  - Crying [None]
  - Abdominal distension [None]
  - Flatulence [None]
  - Diarrhoea haemorrhagic [None]
  - Uterine prolapse [None]
  - Cystocele [None]
  - Large intestinal obstruction [None]
  - Volvulus [None]
  - Ileus [None]
  - Abdominal pain upper [None]

NARRATIVE: CASE EVENT DATE: 20231202
